FAERS Safety Report 4700596-6 (Version None)
Quarter: 2005Q2

REPORT INFORMATION
  Report Type: 
  Country: None (occurrence: None)
  Receive Date: 20050627
  Receipt Date: 20050614
  Transmission Date: 20051028
  Serious: Yes (Other)
  Sender: FDA-Public Use
  Company Number: 2005088539

PATIENT
  Age: 77 Year
  Sex: Male

DRUGS (1)
  1. DEPO-MEDROL [Suspect]
     Indication: WHIPLASH INJURY
     Dosage: UNKNOWN
     Route: 065

REACTIONS (19)
  - ABDOMINAL DISTENSION [None]
  - ALOPECIA [None]
  - DERMATITIS INFECTED [None]
  - ECZEMA [None]
  - EXOPHTHALMOS [None]
  - EYE DISORDER [None]
  - GINGIVAL INFECTION [None]
  - HYPOAESTHESIA [None]
  - LENTIGO [None]
  - OCULAR HYPERAEMIA [None]
  - PAIN [None]
  - PURPURA [None]
  - SCINTILLATING SCOTOMA [None]
  - SKIN HAEMORRHAGE [None]
  - SKIN PAPILLOMA [None]
  - STOMATITIS [None]
  - THROMBOSIS [None]
  - TOOTH EXTRACTION [None]
  - XEROPHTHALMIA [None]
